FAERS Safety Report 24441265 (Version 2)
Quarter: 2024Q4

REPORT INFORMATION
  Report Type: Report from Study
  Country: CH (occurrence: CH)
  Receive Date: 20241016
  Receipt Date: 20241017
  Transmission Date: 20250114
  Serious: No
  Sender: ROCHE
  Company Number: CH-ROCHE-3474484

PATIENT
  Age: 2 Year
  Sex: Male
  Weight: 13.0 kg

DRUGS (24)
  1. EMICIZUMAB [Suspect]
     Active Substance: EMICIZUMAB
     Indication: Haemophilia A without inhibitors
     Route: 058
     Dates: start: 20220609, end: 20220630
  2. EMICIZUMAB [Suspect]
     Active Substance: EMICIZUMAB
     Route: 058
     Dates: start: 20220707, end: 20221215
  3. EMICIZUMAB [Suspect]
     Active Substance: EMICIZUMAB
     Route: 058
     Dates: start: 20221222
  4. HAEMOCTIN [Concomitant]
     Dosage: 30/MAY/2022
     Route: 042
     Dates: start: 20220527
  5. HAEMOCTIN [Concomitant]
     Dosage: 03/APR/2023
     Route: 042
     Dates: start: 20230403
  6. HAEMOCTIN [Concomitant]
     Dosage: 03/APR/2023
     Route: 042
     Dates: start: 20230403
  7. HAEMOCTIN [Concomitant]
     Dosage: 06/APR/2023
     Route: 042
     Dates: start: 20230404
  8. HAEMOCTIN [Concomitant]
     Dosage: 12/APR/2023?13/APR/2023 TO 17/APR/2023
     Route: 042
     Dates: start: 20230407
  9. AMOXICILLIN\CLAVULANIC ACID [Concomitant]
     Active Substance: AMOXICILLIN\CLAVULANIC ACID
     Dosage: 30/MAY/2022
     Route: 048
     Dates: start: 20220527
  10. AMOXICILLIN\CLAVULANIC ACID [Concomitant]
     Active Substance: AMOXICILLIN\CLAVULANIC ACID
     Dosage: 06/JUN/2022
     Route: 048
     Dates: start: 20220530
  11. DAFALGAN [Concomitant]
     Active Substance: ACETAMINOPHEN
     Indication: Pyrexia
     Dosage: 30/MAY/2022
     Route: 048
     Dates: start: 20220527
  12. DAFALGAN [Concomitant]
     Active Substance: ACETAMINOPHEN
     Dosage: 28/OCT/2022
     Route: 054
     Dates: start: 20221028
  13. METAMIZOLE [Concomitant]
     Active Substance: METAMIZOLE
     Dosage: 30/MAY/2022
     Route: 048
     Dates: start: 20220527
  14. MIDAZOLAM HYDROCHLORIDE [Concomitant]
     Active Substance: MIDAZOLAM HYDROCHLORIDE
     Dosage: 30/MAY/2022
     Route: 045
     Dates: start: 20220527
  15. MIDAZOLAM HYDROCHLORIDE [Concomitant]
     Active Substance: MIDAZOLAM HYDROCHLORIDE
     Dosage: 30/MAY/2022
     Route: 045
     Dates: start: 20220530
  16. NALBUPHINE [Concomitant]
     Active Substance: NALBUPHINE
     Dosage: 30/MAY/2022
     Route: 042
     Dates: start: 20230527
  17. METHIMAZOLE [Concomitant]
     Active Substance: METHIMAZOLE
     Indication: Pyrexia
     Dosage: 14/NOV/2022
     Route: 048
     Dates: start: 20221114
  18. TRANEXAMIC ACID [Concomitant]
     Active Substance: TRANEXAMIC ACID
     Dosage: 03/APR/2023
     Route: 042
     Dates: start: 20230403
  19. TRANEXAMIC ACID [Concomitant]
     Active Substance: TRANEXAMIC ACID
     Route: 048
     Dates: start: 20230403, end: 20230417
  20. ALBUTEROL [Concomitant]
     Active Substance: ALBUTEROL
     Indication: Bronchitis
     Dosage: 30/DEC/2022
     Route: 055
     Dates: start: 20221223
  21. NEXIUM [Concomitant]
     Active Substance: ESOMEPRAZOLE MAGNESIUM
     Indication: Bronchitis
     Dosage: 30/DEC/2022
     Dates: start: 20221223
  22. AZITHROMYCIN [Concomitant]
     Active Substance: AZITHROMYCIN
  23. HYALURONATE SODIUM [Concomitant]
     Active Substance: HYALURONATE SODIUM
  24. ACETAMINOPHEN [Concomitant]
     Active Substance: ACETAMINOPHEN

REACTIONS (1)
  - Cough [Recovered/Resolved]

NARRATIVE: CASE EVENT DATE: 20230910
